FAERS Safety Report 6530884-2 (Version None)
Quarter: 2010Q1

REPORT INFORMATION
  Report Type: 
  Country: None (occurrence: None)
  Receive Date: 20100108
  Receipt Date: 20090701
  Transmission Date: 20100710
  Serious: No
  Sender: FDA-Public Use
  Company Number: A0782585A

PATIENT
  Age: 73 Year
  Sex: Female
  Weight: 70.9 kg

DRUGS (7)
  1. LOVAZA [Suspect]
     Dosage: 2G TWICE PER DAY
     Route: 048
     Dates: start: 20090104, end: 20090422
  2. ZOCOR [Concomitant]
  3. Q10 [Concomitant]
  4. M.V.I. [Concomitant]
  5. LOPRESSOR [Concomitant]
  6. SENNA [Concomitant]
  7. VALIUM [Concomitant]

REACTIONS (5)
  - BLOOD TRIGLYCERIDES INCREASED [None]
  - DRUG INEFFECTIVE [None]
  - GASTROOESOPHAGEAL REFLUX DISEASE [None]
  - MALAISE [None]
  - REGURGITATION [None]
